FAERS Safety Report 24540885 (Version 1)
Quarter: 2024Q4

REPORT INFORMATION
  Report Type: Spontaneous
  Country: US (occurrence: US)
  Receive Date: 20241023
  Receipt Date: 20241023
  Transmission Date: 20250115
  Serious: Yes (Other)
  Sender: SANDOZ
  Company Number: US-002147023-NVSC2023US097669

PATIENT
  Age: 55 Year
  Sex: Female

DRUGS (3)
  1. CARVEDILOL [Suspect]
     Active Substance: CARVEDILOL
     Indication: Cardiac failure
     Dosage: UNK
     Route: 048
     Dates: start: 202303
  2. ENTRESTO [Suspect]
     Active Substance: SACUBITRIL\VALSARTAN
     Indication: Cardiac failure
     Dosage: 1 DOSAGE FORM, BID
     Route: 048
     Dates: start: 202304
  3. TIKOSYN [Concomitant]
     Active Substance: DOFETILIDE
     Indication: Arrhythmia
     Dosage: UNK
     Route: 065

REACTIONS (9)
  - Bradycardia [Not Recovered/Not Resolved]
  - Asthenia [Unknown]
  - Weight fluctuation [Not Recovered/Not Resolved]
  - Chest pain [Recovered/Resolved]
  - Dyspnoea exertional [Recovering/Resolving]
  - Peripheral swelling [Unknown]
  - Fatigue [Not Recovered/Not Resolved]
  - Hypotension [Recovered/Resolved]
  - Product dose omission in error [Unknown]

NARRATIVE: CASE EVENT DATE: 20230301
